FAERS Safety Report 10029851 (Version 1)
Quarter: 2014Q1

REPORT INFORMATION
  Report Type: Spontaneous
  Country: US (occurrence: None)
  Receive Date: 20140320
  Receipt Date: 20140320
  Transmission Date: 20141002
  Serious: Yes (Other)
  Sender: FDA-Public Use
  Company Number: 001690990A

PATIENT
  Age: 45 Year
  Sex: Female

DRUGS (2)
  1. MB* ANTIOXIDANT DAY CREME SPF 20 [Suspect]
     Dosage: TWICE DAILY DERMAL
     Dates: start: 20140224, end: 20140226
  2. MB* SKIN BRIGHTENING DECOLLECTE+NECK TREATMENT SPF 15 [Suspect]
     Dosage: TWICE DAILY DERMAL
     Dates: start: 20140224, end: 20140226

REACTIONS (6)
  - Dry skin [None]
  - Erythema [None]
  - Swelling [None]
  - Local swelling [None]
  - Urticaria [None]
  - Dyspnoea [None]
